FAERS Safety Report 7682843-4 (Version None)
Quarter: 2011Q3

REPORT INFORMATION
  Report Type: 
  Country: None (occurrence: None)
  Receive Date: 20110815
  Receipt Date: 20110803
  Transmission Date: 20111222
  Serious: Yes (Other)
  Sender: FDA-Public Use
  Company Number: IT-CELGENEUS-083-21880-11080669

PATIENT
  Sex: Male

DRUGS (4)
  1. REVLIMID [Suspect]
     Indication: MULTIPLE MYELOMA
     Dosage: 10 MILLIGRAM
     Route: 048
     Dates: start: 20080623, end: 20080624
  2. ASPIRIN [Concomitant]
     Route: 065
     Dates: start: 20050818, end: 20110510
  3. OMEPRAZOLE [Concomitant]
     Dates: start: 20050818, end: 20110510
  4. CIPROFLOXACIN [Concomitant]
     Route: 065
     Dates: start: 20050818, end: 20110510

REACTIONS (1)
  - PROSTATE CANCER [None]
